FAERS Safety Report 6928834-X (Version None)
Quarter: 2010Q3

REPORT INFORMATION
  Report Type: 
  Country: None (occurrence: None)
  Receive Date: 20100806
  Receipt Date: 20090629
  Transmission Date: 20110219
  Serious: No
  Sender: FDA-Public Use
  Company Number: 2009-00234

PATIENT
  Age: 54 Year
  Sex: Female
  Weight: 55.3388 kg

DRUGS (2)
  1. ZICAM COLD REMEDY NASAL GEL [Suspect]
     Dosage: BID, 1 MONTH
     Dates: start: 20090401, end: 20090501
  2. ZICAM COLD REMEDY NASAL GEL [Suspect]
     Dosage: BID, 1 MONTH
     Dates: start: 20090401, end: 20090501

REACTIONS (2)
  - AGEUSIA [None]
  - ANOSMIA [None]
